FAERS Safety Report 21502772 (Version 1)
Quarter: 2022Q4

REPORT INFORMATION
  Report Type: Spontaneous
  Country: US (occurrence: US)
  Receive Date: 20221025
  Receipt Date: 20221025
  Transmission Date: 20230113
  Serious: Yes (Other)
  Sender: FDA-Public Use
  Company Number: US-ELI_LILLY_AND_COMPANY-US202210007314

PATIENT
  Age: 64 Year
  Sex: Male

DRUGS (1)
  1. TRULICITY [Suspect]
     Active Substance: DULAGLUTIDE
     Indication: Diabetes mellitus
     Dosage: 4.5 MG, UNKNOWN
     Route: 065
     Dates: start: 20220510, end: 20221012

REACTIONS (3)
  - Pancreatitis [Unknown]
  - Amylase increased [Unknown]
  - Lipase increased [Unknown]

NARRATIVE: CASE EVENT DATE: 20221012
